FAERS Safety Report 10511825 (Version 2)
Quarter: 2014Q4

REPORT INFORMATION
  Report Type: Report from Study
  Country: US (occurrence: US)
  Receive Date: 20141010
  Receipt Date: 20141010
  Transmission Date: 20150528
  Serious: Yes (Hospitalization, Other)
  Sender: FDA-Public Use
  Company Number: GXBR2014US001992

PATIENT
  Age: 34 Year
  Sex: Female
  Weight: 75.28 kg

DRUGS (2)
  1. ENOXAPARIN SODIUM. [Suspect]
     Active Substance: ENOXAPARIN SODIUM
     Indication: THROMBOSIS PROPHYLAXIS
     Dosage: 40 MG, QD
     Route: 058
     Dates: start: 201209, end: 201309
  2. PRENATAL [Concomitant]
     Active Substance: VITAMINS
     Indication: VITAMIN SUPPLEMENTATION
     Dosage: UNK DF, UNK

REACTIONS (6)
  - Premature labour [Recovered/Resolved]
  - Cholelithiasis [Recovered/Resolved]
  - Foetal growth restriction [Recovered/Resolved]
  - Nonreassuring foetal heart rate pattern [Recovered/Resolved]
  - Maternal exposure during pregnancy [Recovered/Resolved]
  - Bile duct obstruction [Recovered/Resolved]

NARRATIVE: CASE EVENT DATE: 201209
